FAERS Safety Report 4936121-4 (Version None)
Quarter: 2006Q1

REPORT INFORMATION
  Report Type: 
  Country: None (occurrence: None)
  Receive Date: 20060307
  Receipt Date: 20051031
  Transmission Date: 20060701
  Serious: No
  Sender: FDA-Public Use
  Company Number: US-GLAXOSMITHKLINE-A0580291A

PATIENT
  Age: 80 Year
  Sex: Male

DRUGS (16)
  1. REQUIP [Suspect]
     Indication: RESTLESS LEGS SYNDROME
     Dosage: 1MG PER DAY
     Route: 048
     Dates: start: 20051019
  2. OMEPRAZOLE [Concomitant]
  3. PROPAFENONE HCL [Concomitant]
  4. FUROSEMIDE [Concomitant]
  5. GEMFIBROZIL [Concomitant]
  6. SIMVASTATIN [Concomitant]
  7. LISINOPRIL [Concomitant]
  8. SERTRALINE [Concomitant]
  9. LUNESTA [Concomitant]
  10. LANOXIN [Concomitant]
  11. TEGRETOL [Concomitant]
  12. VICODIN [Concomitant]
  13. OSTEOBIFLEX [Concomitant]
  14. METHOCARBAMOL [Concomitant]
     Route: 065
  15. CLONAZEPAM [Concomitant]
  16. PROPOXYPHENE HYDROCHLORIDE CAP [Concomitant]

REACTIONS (2)
  - DRUG INEFFECTIVE [None]
  - INSOMNIA [None]
